FAERS Safety Report 7318634-3 (Version None)
Quarter: 2011Q1

REPORT INFORMATION
  Report Type: 
  Country: None (occurrence: None)
  Receive Date: 20110228
  Receipt Date: 20110221
  Transmission Date: 20110831
  Serious: Yes (Hospitalization, Other)
  Sender: FDA-Public Use
  Company Number: US-B.I. PHARMACEUTICALS,INC./RIDGEFIELD-2011-BP-00913BP

PATIENT
  Sex: Male
  Weight: 92.1 kg

DRUGS (9)
  1. DETROL [Concomitant]
     Dates: start: 20090930
  2. IMDUR [Concomitant]
     Dosage: 30 MG
     Dates: start: 20070422
  3. ARICEPT [Concomitant]
     Dosage: 10 MG
     Dates: start: 20100611
  4. PRADAXA [Suspect]
     Indication: ATRIAL FIBRILLATION
     Dosage: 300 MG
     Dates: start: 20101130, end: 20110108
  5. BISOPROLOL FUMARATE [Concomitant]
     Dosage: 2.5 MG
     Dates: start: 20101001
  6. FLOMAX [Concomitant]
     Dosage: 0.4 MEQ
     Dates: start: 20060908
  7. PREVACID [Concomitant]
     Dates: start: 20100611
  8. ALLOPURINOL [Concomitant]
     Dosage: 160 MG
     Dates: start: 20080629
  9. PROSCAR [Concomitant]
     Dates: start: 20090930

REACTIONS (7)
  - GASTROINTESTINAL HAEMORRHAGE [None]
  - HAEMOGLOBIN DECREASED [None]
  - TRANSIENT ISCHAEMIC ATTACK [None]
  - CEREBROVASCULAR ACCIDENT [None]
  - RECTAL HAEMORRHAGE [None]
  - RECTAL POLYP [None]
  - GASTROOESOPHAGEAL REFLUX DISEASE [None]
